FAERS Safety Report 9405747 (Version 1)
Quarter: 2013Q3

REPORT INFORMATION
  Report Type: Spontaneous
  Country: GB (occurrence: GB)
  Receive Date: 20130717
  Receipt Date: 20130717
  Transmission Date: 20140515
  Serious: Yes (Other)
  Sender: FDA-Public Use
  Company Number: GB-ACTAVIS-2013-12659

PATIENT
  Sex: 0

DRUGS (3)
  1. CAPECITABINE (UNKNOWN) [Suspect]
     Indication: NEOADJUVANT THERAPY
     Dosage: 1650 MG, BID
     Route: 048
     Dates: start: 201304, end: 20130524
  2. OXALIPLATIN (UNKNOWN) [Suspect]
     Indication: NEOADJUVANT THERAPY
     Dosage: UNK, UNKNOWN
     Route: 065
     Dates: start: 201304
  3. METOCLOPRAMIDE [Concomitant]
     Indication: PRODUCT USED FOR UNKNOWN INDICATION
     Dosage: UNK, UNKNOWN
     Route: 065

REACTIONS (3)
  - Rash [Recovered/Resolved]
  - Vomiting [Recovered/Resolved]
  - Blister [Recovered/Resolved]
